FAERS Safety Report 23893878 (Version 1)
Quarter: 2024Q2

REPORT INFORMATION
  Report Type: Spontaneous
  Country: US (occurrence: US)
  Receive Date: 20240524
  Receipt Date: 20240524
  Transmission Date: 20240716
  Serious: No
  Sender: FDA-Public Use
  Company Number: US-TEVA-VS-3197249

PATIENT
  Age: 25 Year
  Sex: Female

DRUGS (3)
  1. QNASL [Suspect]
     Active Substance: BECLOMETHASONE DIPROPIONATE
     Indication: Rhinitis allergic
     Dosage: DOSAGE FORM: NASAL AEROSOL
     Route: 065
  2. QNASL [Suspect]
     Active Substance: BECLOMETHASONE DIPROPIONATE
     Dosage: DOSAGE FORM: NASAL AEROSOL
     Route: 065
  3. QNASL [Suspect]
     Active Substance: BECLOMETHASONE DIPROPIONATE
     Dosage: DOSAGE FORM: NASAL AEROSOL
     Route: 065

REACTIONS (3)
  - Sinusitis [Unknown]
  - Device malfunction [Unknown]
  - Device deposit issue [Unknown]
